FAERS Safety Report 10981904 (Version 1)
Quarter: 2015Q2

REPORT INFORMATION
  Report Type: Spontaneous
  Country: US (occurrence: US)
  Receive Date: 20150402
  Receipt Date: 20150402
  Transmission Date: 20150821
  Serious: Yes (Hospitalization)
  Sender: FDA-Public Use
  Company Number: PHEH2015US005844

PATIENT
  Age: 56 Year
  Sex: Female

DRUGS (1)
  1. RECLAST [Suspect]
     Active Substance: ZOLEDRONIC ACID
     Indication: PRODUCT USED FOR UNKNOWN INDICATION
     Dosage: 5 MG (ONCE YEARLY)
     Route: 042
     Dates: start: 20150313

REACTIONS (20)
  - Hepatic enzyme increased [Unknown]
  - Arthralgia [Unknown]
  - Headache [Unknown]
  - Chills [Unknown]
  - Muscular weakness [Unknown]
  - Asthenia [Unknown]
  - Hypertension [Unknown]
  - Hypophagia [Unknown]
  - Musculoskeletal pain [Unknown]
  - Pain [Unknown]
  - Muscle spasms [Unknown]
  - Arthropathy [Unknown]
  - Diarrhoea [Unknown]
  - Weight decreased [Unknown]
  - Nausea [Unknown]
  - Back pain [Unknown]
  - Flank pain [Unknown]
  - Joint swelling [Unknown]
  - Weight increased [Unknown]
  - Bone swelling [Unknown]

NARRATIVE: CASE EVENT DATE: 20150325
